FAERS Safety Report 7700378-7 (Version None)
Quarter: 2011Q3

REPORT INFORMATION
  Report Type: 
  Country: None (occurrence: None)
  Receive Date: 20110822
  Receipt Date: 20110819
  Transmission Date: 20111222
  Serious: Yes (Hospitalization, Other)
  Sender: FDA-Public Use
  Company Number: US-BAYER-2011-044391

PATIENT
  Age: 85 Year
  Sex: Female
  Weight: 52.154 kg

DRUGS (21)
  1. CITALOPRAM [Concomitant]
     Dosage: 20 MG, QD
     Route: 048
  2. TRAMADOL HCL [Concomitant]
     Dosage: 50 MG, QID, PRN
     Route: 048
  3. CIMETIDINE [Concomitant]
     Dosage: 300 MG, QID
     Route: 048
  4. FOSAMAX [Concomitant]
     Dosage: 70 MG, OW
     Route: 048
  5. MUCINEX [Concomitant]
     Dosage: 600 MG, QD, PRN
     Route: 048
  6. ACETAMINOPHEN AND HYDROCODONE BITARTRATE [Concomitant]
     Indication: PAIN
     Dosage: 1 DF, Q4HR, PRN
     Route: 048
  7. IMODIUM [Concomitant]
     Indication: DIARRHOEA
     Dosage: 1 DF, PRN
  8. MULTI-VITAMIN [Concomitant]
     Dosage: 1 DF, QD
     Route: 048
  9. CALCIUM CARBONATE [Concomitant]
     Dosage: 1 DF, QD
     Route: 048
  10. CLONIDINE [Concomitant]
     Dosage: 7 DAY PATCH, OW
     Route: 062
  11. NEXAVAR [Suspect]
     Indication: HEPATIC NEOPLASM MALIGNANT
     Dosage: 400 MG, BID
     Route: 048
     Dates: start: 20110512, end: 20110521
  12. NEXIUM [Concomitant]
     Dosage: 40 MG, QD
     Route: 048
  13. REMERON [Concomitant]
     Dosage: 15 MG, HS
     Route: 048
  14. CITRACAL + D [CALCIUM CITRATE,COLECALCIFEROL] [Concomitant]
     Dosage: 1 DF, QD
  15. NEXAVAR [Suspect]
     Dosage: 400 MG, UNK
     Route: 048
     Dates: start: 20110401, end: 20110421
  16. LORCET-HD [Concomitant]
     Dosage: 1 - 2 TABLETS, QID, PRN
     Route: 048
  17. ALLEGRA [Concomitant]
     Dosage: 180 MG, HS, QD
     Route: 048
  18. ACETAMINOPHEN [Concomitant]
     Dosage: 325 MG, UNK
     Route: 048
  19. CARDIZEM [Concomitant]
     Dosage: 30 MG, UNK
  20. IMDUR [Concomitant]
     Dosage: QD
     Route: 048
  21. TOPROL-XL [Concomitant]
     Dosage: 25 MG, QD
     Route: 048

REACTIONS (13)
  - RASH ERYTHEMATOUS [None]
  - DECREASED APPETITE [None]
  - CARDIAC DISORDER [None]
  - CHILLS [None]
  - HYPERTENSION [None]
  - PYREXIA [None]
  - DYSPHONIA [None]
  - HEADACHE [None]
  - AMNESIA [None]
  - ASTHENIA [None]
  - CHEST PAIN [None]
  - FATIGUE [None]
  - DEPRESSION [None]
